FAERS Safety Report 23500103 (Version 1)
Quarter: 2024Q1

REPORT INFORMATION
  Report Type: Spontaneous
  Country: IN (occurrence: IN)
  Receive Date: 20240208
  Receipt Date: 20240208
  Transmission Date: 20240409
  Serious: Yes (Death)
  Sender: FDA-Public Use
  Company Number: IN-STERISCIENCE B.V.-2024-ST-000074

PATIENT
  Age: 75 Year
  Sex: Male

DRUGS (7)
  1. MEROPENEM [Suspect]
     Active Substance: MEROPENEM
     Indication: Brucella sepsis
     Dosage: UNK
     Route: 065
  2. AMOXICILLIN\CLAVULANATE POTASSIUM [Concomitant]
     Active Substance: AMOXICILLIN\CLAVULANATE POTASSIUM
     Indication: Evidence based treatment
     Dosage: 1.2 MILLIGRAM, STAT DOSE
     Route: 042
  3. AMOXICILLIN\CLAVULANATE POTASSIUM [Concomitant]
     Active Substance: AMOXICILLIN\CLAVULANATE POTASSIUM
     Indication: Antibiotic therapy
  4. CLINDAMYCIN [Concomitant]
     Active Substance: CLINDAMYCIN
     Indication: Evidence based treatment
     Dosage: UNK
     Route: 065
  5. CLINDAMYCIN [Concomitant]
     Active Substance: CLINDAMYCIN
     Indication: Antibiotic therapy
  6. DEXTROSE [Concomitant]
     Active Substance: DEXTROSE\DEXTROSE MONOHYDRATE
     Indication: Hypoglycaemia
     Dosage: ADMINISTERED 6TH HOURLY
     Route: 065
  7. SODIUM BICARBONATE [Suspect]
     Active Substance: SODIUM BICARBONATE
     Indication: Metabolic acidosis
     Dosage: UNK
     Route: 065

REACTIONS (1)
  - Drug ineffective for unapproved indication [Fatal]
